FAERS Safety Report 25385389 (Version 1)
Quarter: 2025Q2

REPORT INFORMATION
  Report Type: Spontaneous
  Country: TH (occurrence: TH)
  Receive Date: 20250602
  Receipt Date: 20250602
  Transmission Date: 20250716
  Serious: Yes (Hospitalization)
  Sender: BOEHRINGER INGELHEIM
  Company Number: TH-BoehringerIngelheim-2025-BI-073249

PATIENT
  Age: 75 Year
  Sex: Male

DRUGS (6)
  1. TIOTROPIUM [Suspect]
     Active Substance: TIOTROPIUM
     Indication: Chronic obstructive pulmonary disease
     Dates: start: 20230316
  2. TIOTROPIUM [Suspect]
     Active Substance: TIOTROPIUM
     Dates: start: 20230322, end: 20230410
  3. TIOTROPIUM [Suspect]
     Active Substance: TIOTROPIUM
     Dates: start: 20230707
  4. Flu/Sal 50/250 [Concomitant]
     Indication: Chronic obstructive pulmonary disease
     Dosage: FLU/SAL 50/250
     Dates: start: 20230316
  5. Flu/Sal 50/250 [Concomitant]
     Dates: start: 20230322, end: 20230410
  6. Flu/Sal 50/250 [Concomitant]
     Dosage: FLU/SAL 50/250
     Dates: start: 20230707

REACTIONS (4)
  - Chronic obstructive pulmonary disease [Unknown]
  - Pneumonia [Recovered/Resolved]
  - Chronic obstructive pulmonary disease [Unknown]
  - Chronic obstructive pulmonary disease [Unknown]

NARRATIVE: CASE EVENT DATE: 20230320
